FAERS Safety Report 24084226 (Version 1)
Quarter: 2024Q3

REPORT INFORMATION
  Report Type: Report from Study
  Country: US (occurrence: US)
  Receive Date: 20240712
  Receipt Date: 20240712
  Transmission Date: 20241016
  Serious: Yes (Hospitalization)
  Sender: ACCORD
  Company Number: US-Accord-434041

PATIENT
  Sex: Female
  Weight: 154.22 kg

DRUGS (3)
  1. CLOZAPINE [Suspect]
     Active Substance: CLOZAPINE
     Indication: Schizophrenia
     Dosage: 150 MG ORAL EVERY MORNING AND 250 MG ORAL EVERY NIGHT
     Route: 048
  2. LAMICTAL [Suspect]
     Active Substance: LAMOTRIGINE
     Indication: Schizophrenia
     Dosage: 200MG ONCE DAILY
  3. HALDOL [Suspect]
     Active Substance: HALOPERIDOL
     Indication: Schizophrenia
     Dosage: 10MG TWICE DAILY

REACTIONS (1)
  - Aggression [Unknown]
